FAERS Safety Report 13847436 (Version 1)
Quarter: 2017Q3

REPORT INFORMATION
  Report Type: Spontaneous
  Country: US (occurrence: US)
  Receive Date: 20170808
  Receipt Date: 20170808
  Transmission Date: 20171127
  Serious: No
  Sender: FDA-Public Use
  Company Number: PHEH2017US024354

PATIENT
  Sex: Male

DRUGS (1)
  1. AZOPT [Suspect]
     Active Substance: BRINZOLAMIDE
     Indication: PRODUCT USED FOR UNKNOWN INDICATION
     Dosage: 1 GTT, BID (MORNING AND EVENING)
     Route: 047
     Dates: start: 20170606, end: 20170723

REACTIONS (9)
  - Chest discomfort [Not Recovered/Not Resolved]
  - Eye disorder [Not Recovered/Not Resolved]
  - Cough [Not Recovered/Not Resolved]
  - Heart rate increased [Not Recovered/Not Resolved]
  - Paraesthesia [Not Recovered/Not Resolved]
  - Dizziness [Not Recovered/Not Resolved]
  - Ocular hyperaemia [Unknown]
  - Tremor [Not Recovered/Not Resolved]
  - Intraocular pressure increased [Recovering/Resolving]
